FAERS Safety Report 4322365-1 (Version None)
Quarter: 2004Q1

REPORT INFORMATION
  Report Type: 
  Country: None (occurrence: None)
  Receive Date: 20040319
  Receipt Date: 20040311
  Transmission Date: 20041129
  Serious: Yes (Hospitalization)
  Sender: FDA-Public Use
  Company Number: 2004EU000577

PATIENT
  Age: 17 Year
  Sex: Female

DRUGS (5)
  1. FK506(TACROLIMUS) [Suspect]
     Indication: LIVER TRANSPLANT
     Dosage: 0.15 MG/KG, BID
     Dates: start: 20001001, end: 20010301
  2. AZATHIOPRINE [Concomitant]
  3. CORTICOSTEROIDS [Concomitant]
  4. GANCICLOVIR SODIUM [Concomitant]
  5. PYRIMETHAMINE TAB [Concomitant]

REACTIONS (4)
  - ANAEMIA [None]
  - BONE MARROW DEPRESSION [None]
  - NEUTROPENIA [None]
  - THROMBOCYTOPENIA [None]
